FAERS Safety Report 7959674-0 (Version None)
Quarter: 2011Q4

REPORT INFORMATION
  Report Type: 
  Country: None (occurrence: None)
  Receive Date: 20111206
  Receipt Date: 20100713
  Transmission Date: 20120403
  Serious: Yes (Death, Hospitalization)
  Sender: FDA-Public Use
  Company Number: US-GLAXOSMITHKLINE-A0871764A

PATIENT
  Age: 68 Year
  Sex: Female

DRUGS (1)
  1. AVANDIA [Suspect]
     Indication: TYPE 2 DIABETES MELLITUS
     Route: 048
     Dates: end: 20041207

REACTIONS (4)
  - CARDIAC FAILURE CONGESTIVE [None]
  - MACULAR OEDEMA [None]
  - MULTIPLE FRACTURES [None]
  - DEATH [None]
